FAERS Safety Report 4661794-3 (Version None)
Quarter: 2005Q2

REPORT INFORMATION
  Report Type: 
  Country: None (occurrence: None)
  Receive Date: 20050513
  Receipt Date: 20050418
  Transmission Date: 20051028
  Serious: Yes (Hospitalization)
  Sender: FDA-Public Use
  Company Number: 2005UW06244

PATIENT
  Age: 69 Year
  Sex: Female
  Weight: 60 kg

DRUGS (2)
  1. ROSUVASTATIN [Suspect]
     Indication: HYPERCHOLESTEROLAEMIA
     Route: 048
     Dates: start: 20040219, end: 20050108
  2. DYAZIDE [Concomitant]
     Indication: HYPERTENSION
     Dosage: 1/4 TAB DAILY
     Route: 048
     Dates: start: 20030503

REACTIONS (25)
  - ALANINE AMINOTRANSFERASE INCREASED [None]
  - ASPARTATE AMINOTRANSFERASE INCREASED [None]
  - ASTHENIA [None]
  - ATELECTASIS [None]
  - BIOPSY MUSCLE ABNORMAL [None]
  - BLOOD GLUCOSE INCREASED [None]
  - BLOOD PRESSURE SYSTOLIC INCREASED [None]
  - BONE SCAN ABNORMAL [None]
  - BRAIN SCAN ABNORMAL [None]
  - BRONCHIECTASIS [None]
  - CEREBRAL INFARCTION [None]
  - CHRONIC INFLAMMATORY DEMYELINATING POLYRADICULONEUROPATHY [None]
  - DIFFICULTY IN WALKING [None]
  - LUNG NEOPLASM [None]
  - MONONEUROPATHY MULTIPLEX [None]
  - MUSCLE ATROPHY [None]
  - MUSCLE SPASMS [None]
  - PAIN IN EXTREMITY [None]
  - PLATELET COUNT DECREASED [None]
  - RED BLOOD CELL SEDIMENTATION RATE INCREASED [None]
  - RENAL CYST [None]
  - RHEUMATOID FACTOR INCREASED [None]
  - SENSORY LOSS [None]
  - VASCULITIS [None]
  - WHITE BLOOD CELL COUNT INCREASED [None]
